FAERS Safety Report 9214406 (Version 9)
Quarter: 2018Q3

REPORT INFORMATION
  Report Type: Report from Study
  Country: CA (occurrence: CA)
  Receive Date: 20130405
  Receipt Date: 20180919
  Transmission Date: 20181010
  Serious: Yes (Hospitalization, Other)
  Sender: FDA-Public Use
  Company Number: CA-ROCHE-1197450

PATIENT
  Age: 69 Year
  Sex: Female
  Weight: 117 kg

DRUGS (13)
  1. XENICAL [Suspect]
     Active Substance: ORLISTAT
     Indication: WEIGHT INCREASED
     Route: 065
     Dates: end: 201301
  2. CRESTOR [Concomitant]
     Active Substance: ROSUVASTATIN CALCIUM
  3. ELAVIL [Concomitant]
     Active Substance: AMITRIPTYLINE HYDROCHLORIDE
  4. CIPRALEX [Concomitant]
     Active Substance: ESCITALOPRAM OXALATE
  5. ACTEMRA [Suspect]
     Active Substance: TOCILIZUMAB
     Route: 042
     Dates: start: 20130306
  6. VITAMIN E [Concomitant]
     Active Substance: .ALPHA.-TOCOPHEROL
  7. PREDNISONE. [Suspect]
     Active Substance: PREDNISONE
     Indication: PRODUCT USED FOR UNKNOWN INDICATION
     Route: 065
  8. DILTIAZEM. [Concomitant]
     Active Substance: DILTIAZEM
  9. ACTONEL [Concomitant]
     Active Substance: RISEDRONATE SODIUM
  10. ACTEMRA [Suspect]
     Active Substance: TOCILIZUMAB
     Indication: RHEUMATOID ARTHRITIS
     Route: 042
     Dates: start: 20121212, end: 20140111
  11. FOLIC ACID. [Concomitant]
     Active Substance: FOLIC ACID
  12. HYDROMORPH CONTIN [Concomitant]
     Active Substance: HYDROMORPHONE
  13. METHOTREXATE. [Concomitant]
     Active Substance: METHOTREXATE

REACTIONS (16)
  - Fall [Unknown]
  - Arthralgia [Not Recovered/Not Resolved]
  - Fractured sacrum [Unknown]
  - Skin papilloma [Recovered/Resolved]
  - Body height decreased [Unknown]
  - Drug ineffective [Unknown]
  - Spinal fracture [Not Recovered/Not Resolved]
  - Pelvic fracture [Unknown]
  - Postoperative wound infection [Recovering/Resolving]
  - Lumbar vertebral fracture [Unknown]
  - Drug effect decreased [Unknown]
  - Weight increased [Not Recovered/Not Resolved]
  - Hypotension [Not Recovered/Not Resolved]
  - Pain [Unknown]
  - Pain [Not Recovered/Not Resolved]
  - Limb injury [Not Recovered/Not Resolved]

NARRATIVE: CASE EVENT DATE: 2013
